FAERS Safety Report 9034417 (Version 1)
Quarter: 2013Q1

REPORT INFORMATION
  Report Type: Spontaneous
  Country: US (occurrence: None)
  Receive Date: 20130116
  Receipt Date: 20130116
  Transmission Date: 20140127
  Serious: Yes (Other)
  Sender: FDA-Public Use
  Company Number: None

PATIENT
  Age: 79 Year
  Sex: Male
  Weight: 63.5 kg

DRUGS (1)
  1. LOSARTIN [Suspect]
     Indication: LABILE HYPERTENSION
     Dosage: 50 MG DAILY, RAISED TO 100 MG DAILY PO
     Route: 048
     Dates: start: 20121212

REACTIONS (2)
  - Product substitution issue [None]
  - Blood pressure increased [None]
